FAERS Safety Report 4888160-X (Version None)
Quarter: 2006Q1

REPORT INFORMATION
  Report Type: 
  Country: None (occurrence: None)
  Receive Date: 20060119
  Receipt Date: 20060111
  Transmission Date: 20060701
  Serious: Yes (Other)
  Sender: FDA-Public Use
  Company Number: 2006007778

PATIENT
  Age: 57 Year
  Sex: Female
  Weight: 113.3993 kg

DRUGS (4)
  1. ZOLOFT [Suspect]
     Indication: DEPRESSION
     Dosage: 200 MG (100 MG, 1 IN 1 D), ORAL
     Route: 048
  2. NEXIUM [Concomitant]
  3. LORAZEPAM [Concomitant]
  4. ZOCOR [Concomitant]

REACTIONS (1)
  - BREAST CANCER FEMALE [None]
